FAERS Safety Report 9564095 (Version 2)
Quarter: 2013Q4

REPORT INFORMATION
  Report Type: Report from Study
  Country: US (occurrence: US)
  Receive Date: 20130929
  Receipt Date: 20131121
  Transmission Date: 20140711
  Serious: Yes (Death)
  Sender: FDA-Public Use
  Company Number: PHEH2013US020273

PATIENT
  Age: 85 Year
  Sex: Female
  Weight: 43.99 kg

DRUGS (2)
  1. EXJADE [Suspect]
     Indication: IRON OVERLOAD
     Dosage: 250 MG, TID
     Route: 048
  2. PROCRIT//ERYTHROPOIETIN [Concomitant]
     Indication: HAEMOGLOBIN DECREASED
     Dosage: 80 U, WEEKLY
     Route: 058

REACTIONS (1)
  - Death [Fatal]
